FAERS Safety Report 8019902-2 (Version None)
Quarter: 2012Q1

REPORT INFORMATION
  Report Type: 
  Country: None (occurrence: None)
  Receive Date: 20120103
  Receipt Date: 20111227
  Transmission Date: 20120608
  Serious: Yes (Hospitalization, Other)
  Sender: FDA-Public Use
  Company Number: US-BAYER-2011-062477

PATIENT
  Age: 18 Year
  Sex: Female
  Weight: 66.213 kg

DRUGS (8)
  1. SEROQUEL [Concomitant]
     Indication: ABNORMAL BEHAVIOUR
  2. CONCERTA [Concomitant]
     Indication: ATTENTION DEFICIT/HYPERACTIVITY DISORDER
  3. CONTRACEPTIVES NOS [Concomitant]
  4. SEROQUEL [Concomitant]
     Indication: AGGRESSION
  5. SEROQUEL [Concomitant]
     Indication: MOOD SWINGS
  6. YAZ [Suspect]
     Indication: PREMENSTRUAL SYNDROME
     Dosage: UNK
     Dates: start: 20081201, end: 20090901
  7. FLUOXETINE HCL [Concomitant]
     Indication: PREMENSTRUAL SYNDROME
  8. FLUOXETINE HCL [Concomitant]
     Indication: ABNORMAL BEHAVIOUR

REACTIONS (4)
  - PULMONARY EMBOLISM [None]
  - CHOLECYSTECTOMY [None]
  - DEEP VEIN THROMBOSIS [None]
  - INJURY [None]
